FAERS Safety Report 12540472 (Version 1)
Quarter: 2016Q3

REPORT INFORMATION
  Report Type: Report from Study
  Country: PE (occurrence: IT)
  Receive Date: 20160708
  Receipt Date: 20160708
  Transmission Date: 20161109
  Serious: Yes (Other)
  Sender: FDA-Public Use
  Company Number: PE-009507513-1607PER001407

PATIENT
  Age: 75 Year
  Sex: Female

DRUGS (1)
  1. JANUMET [Suspect]
     Active Substance: METFORMIN HYDROCHLORIDE\SITAGLIPTIN PHOSPHATE
     Indication: DIABETES MELLITUS
     Dosage: 50/500 MG, ONCE A DAY
     Route: 048
     Dates: start: 2015

REACTIONS (2)
  - Product use issue [Unknown]
  - Paralysis [Unknown]

NARRATIVE: CASE EVENT DATE: 2015
